FAERS Safety Report 9838318 (Version 2)
Quarter: 2014Q4

REPORT INFORMATION
  Report Type: Spontaneous
  Country: US (occurrence: None)
  Receive Date: 20131206
  Receipt Date: 20141209
  Transmission Date: 20150529
  Serious: Yes (Other)
  Sender: FDA-Public Use
  Company Number: 364987

PATIENT
  Age: 63 Year
  Sex: Male
  Weight: 60.8 kg

DRUGS (6)
  1. NOVOLOG [Suspect]
     Active Substance: INSULIN ASPART
     Indication: TYPE 2 DIABETES MELLITUS
     Dosage: 4U (AM), 3U (LUNCH), 4U (PM), SUBCUTANEOUS
     Route: 058
     Dates: end: 2007
  2. LANTUS [Suspect]
     Active Substance: INSULIN GLARGINE
     Indication: TYPE 2 DIABETES MELLITUS
     Route: 058
  3. PLAVIX (CLOPIDOGREL BISULATE) [Concomitant]
  4. ZOCOR [Concomitant]
     Active Substance: SIMVASTATIN
  5. NORVASC [Concomitant]
     Active Substance: AMLODIPINE BESYLATE
  6. COREG [Concomitant]
     Active Substance: CARVEDILOL

REACTIONS (2)
  - Blood glucose decreased [None]
  - Hyperhidrosis [None]

NARRATIVE: CASE EVENT DATE: 2011
